FAERS Safety Report 14343593 (Version 15)
Quarter: 2021Q1

REPORT INFORMATION
  Report Type: Spontaneous
  Country: US (occurrence: US)
  Receive Date: 20180102
  Receipt Date: 20210201
  Transmission Date: 20210419
  Serious: Yes (Disabling, Other)
  Sender: FDA-Public Use
  Company Number: US-PFIZER INC-2017555069

PATIENT
  Age: 77 Year
  Sex: Female
  Weight: 88 kg

DRUGS (10)
  1. METOPROLOL. [Concomitant]
     Active Substance: METOPROLOL
     Indication: ATRIAL FIBRILLATION
     Dosage: 25 MG, 2X/DAY (25 MG IN THE MORNING AND 25MG AT NIGHT)
     Route: 048
     Dates: start: 2016
  2. VITAMIN D [Concomitant]
     Active Substance: VITAMIN D NOS
     Indication: VITAMIN D DECREASED
     Dosage: 50000 IU, WEEKLY (50000 UNITS ONCE A WEEK)
  3. ELIQUIS [Concomitant]
     Active Substance: APIXABAN
     Indication: ATRIAL FIBRILLATION
     Dosage: 5 MG, 2X/DAY
     Route: 048
     Dates: start: 201609
  4. LETROZOLE. [Concomitant]
     Active Substance: LETROZOLE
     Dosage: UNK
  5. IBRANCE [Suspect]
     Active Substance: PALBOCICLIB
     Indication: BREAST CANCER STAGE IV
     Dosage: 125 MG, CYCLIC (FOR 21 DAYS AND COME OFF FOR A WEEK),125 MG BY MOUTH 3 WEEKS ON AND 1 WEEK OFF
     Route: 048
     Dates: start: 201707
  6. FASLODEX [Concomitant]
     Active Substance: FULVESTRANT
     Dosage: 2 DF, MONTHLY (INJECTIONS TWICE A MONTH IN EACH BUTT ONCE A MONTH)
     Dates: start: 201707
  7. FASLODEX [Concomitant]
     Active Substance: FULVESTRANT
     Indication: NEOPLASM MALIGNANT
     Dosage: UNK, UNK (INJECTION EVERY 2 WEEKS FOR A MONTH INITIALLY)
     Dates: start: 201707
  8. LISINOPRIL. [Concomitant]
     Active Substance: LISINOPRIL
     Indication: HYPERTENSION
     Dosage: 10 MG, 2X/DAY (10 MG TABLET IN THE MORNING AND 10 MG TABLET AT NIGHT)
  9. FASLODEX [Concomitant]
     Active Substance: FULVESTRANT
     Indication: BREAST CANCER STAGE IV
     Dosage: UNK, MONTHLY (ONCE A MONTH)
     Dates: start: 2017, end: 20171214
  10. IBRANCE [Suspect]
     Active Substance: PALBOCICLIB
     Dosage: 125 MG

REACTIONS (23)
  - Rhinorrhoea [Recovered/Resolved]
  - Wheezing [Recovered/Resolved]
  - Neoplasm progression [Not Recovered/Not Resolved]
  - Fatigue [Not Recovered/Not Resolved]
  - Platelet count decreased [Unknown]
  - Choking [Recovered/Resolved]
  - Cataract [Unknown]
  - Headache [Not Recovered/Not Resolved]
  - Contusion [Unknown]
  - White blood cell count decreased [Unknown]
  - Pyrexia [Recovered/Resolved]
  - Nasal congestion [Unknown]
  - Balance disorder [Unknown]
  - Bronchitis [Unknown]
  - Nasopharyngitis [Recovered/Resolved with Sequelae]
  - Cough [Recovered/Resolved]
  - Inappropriate schedule of product administration [Unknown]
  - Sciatica [Unknown]
  - Pneumonia [Unknown]
  - Alopecia [Not Recovered/Not Resolved]
  - Decreased appetite [Recovered/Resolved]
  - Red blood cell count decreased [Unknown]
  - Blood count abnormal [Unknown]

NARRATIVE: CASE EVENT DATE: 20171214
